FAERS Safety Report 7966194-6 (Version None)
Quarter: 2011Q4

REPORT INFORMATION
  Report Type: 
  Country: None (occurrence: None)
  Receive Date: 20111208
  Receipt Date: 20111202
  Transmission Date: 20120403
  Serious: Yes (Hospitalization, Other)
  Sender: FDA-Public Use
  Company Number: PHHY2011JP103876

PATIENT
  Age: 4 Year
  Sex: Female

DRUGS (1)
  1. PAMIDRONATE DISODIUM [Suspect]
     Indication: CONGENITAL OSTEODYSTROPHY
     Route: 042

REACTIONS (6)
  - GAIT DISTURBANCE [None]
  - JOINT DISLOCATION [None]
  - HYPOKINESIA [None]
  - EPIPHYSEAL FRACTURE [None]
  - PSEUDARTHROSIS [None]
  - LIMB ASYMMETRY [None]
